FAERS Safety Report 9508959 (Version 1)
Quarter: 2013Q3

REPORT INFORMATION
  Report Type: Spontaneous
  Country: US (occurrence: US)
  Receive Date: 20130909
  Receipt Date: 20130909
  Transmission Date: 20140515
  Serious: No
  Sender: FDA-Public Use
  Company Number: US-BRISTOL-MYERS SQUIBB COMPANY-19069210

PATIENT
  Age: 15 Year
  Sex: Female
  Weight: 50.79 kg

DRUGS (2)
  1. ABILIFY [Suspect]
     Indication: AFFECTIVE DISORDER
     Dosage: DOSE REDUCED TO 2.5 MG AND SUBSEQUENTLY BROUGHT BACK TO 5MG
     Route: 048
     Dates: start: 201305
  2. LEXAPRO [Concomitant]

REACTIONS (2)
  - Somnolence [Unknown]
  - Vision blurred [Unknown]
